FAERS Safety Report 10673420 (Version 2)
Quarter: 2015Q4

REPORT INFORMATION
  Report Type: Report from Study
  Country: US (occurrence: US)
  Receive Date: 20141224
  Receipt Date: 20151125
  Transmission Date: 20160304
  Serious: Yes (Hospitalization)
  Sender: FDA-Public Use
  Company Number: US-BIOGENIDEC-2014BI134166

PATIENT
  Age: 56 Year
  Sex: Female

DRUGS (2)
  1. TECFIDERA [Suspect]
     Active Substance: DIMETHYL FUMARATE
     Indication: MULTIPLE SCLEROSIS
     Route: 048
     Dates: start: 20141105, end: 20141108
  2. TECFIDERA [Suspect]
     Active Substance: DIMETHYL FUMARATE
     Indication: MULTIPLE SCLEROSIS
     Route: 048
     Dates: start: 20141109, end: 201411

REACTIONS (7)
  - Local swelling [Unknown]
  - Pharyngeal oedema [Unknown]
  - Cardiac failure [Not Recovered/Not Resolved]
  - Feeling abnormal [Recovered/Resolved]
  - Eye swelling [Unknown]
  - Hypersensitivity [Recovered/Resolved]
  - Pulmonary hypertension [Unknown]

NARRATIVE: CASE EVENT DATE: 2014
